FAERS Safety Report 7082928-X (Version None)
Quarter: 2010Q4

REPORT INFORMATION
  Report Type: 
  Country: None (occurrence: None)
  Receive Date: 20101104
  Receipt Date: 20101102
  Transmission Date: 20110411
  Serious: Yes (Life-Threatening, Hospitalization)
  Sender: FDA-Public Use
  Company Number: PHHY2010FI53870

PATIENT
  Sex: Female

DRUGS (1)
  1. LEPONEX [Suspect]

REACTIONS (3)
  - GASTROINTESTINAL TOXICITY [None]
  - MEGACOLON [None]
  - OBSTRUCTION GASTRIC [None]
